FAERS Safety Report 26113326 (Version 1)
Quarter: 2025Q4

REPORT INFORMATION
  Report Type: Spontaneous
  Country: US (occurrence: US)
  Receive Date: 20251202
  Receipt Date: 20251202
  Transmission Date: 20260118
  Serious: Yes (Death)
  Sender: ASTELLAS
  Company Number: US-ASTELLAS-2025-AER-022273

PATIENT
  Sex: Male

DRUGS (1)
  1. PADCEV [Suspect]
     Active Substance: ENFORTUMAB VEDOTIN-EJFV
     Indication: Product used for unknown indication
     Dosage: DOSED PADCEV ABOVE MAX 125MG DOSING
     Route: 050

REACTIONS (2)
  - Stevens-Johnson syndrome [Fatal]
  - Overdose [Unknown]
